FAERS Safety Report 6834892-3 (Version None)
Quarter: 2010Q3

REPORT INFORMATION
  Report Type: 
  Country: None (occurrence: None)
  Receive Date: 20100712
  Receipt Date: 20070803
  Transmission Date: 20110219
  Serious: No
  Sender: FDA-Public Use
  Company Number: US-PFIZER INC-2007034122

PATIENT
  Sex: Female
  Weight: 90.9 kg

DRUGS (4)
  1. CHANTIX [Suspect]
     Indication: SMOKING CESSATION THERAPY
     Route: 048
     Dates: start: 20070428
  2. ATENOLOL [Concomitant]
     Indication: HYPERTENSION
  3. MEVACOR [Concomitant]
     Indication: BLOOD CHOLESTEROL INCREASED
  4. ACETYLSALICYLIC ACID [Concomitant]
     Dosage: BID-TID: PRN

REACTIONS (5)
  - FOOD ALLERGY [None]
  - NASAL DISCOMFORT [None]
  - NASAL OEDEMA [None]
  - PRURITUS [None]
  - RASH MACULAR [None]
